FAERS Safety Report 10856222 (Version 2)
Quarter: 2015Q1

REPORT INFORMATION
  Report Type: Report from Study
  Country: FR (occurrence: FR)
  Receive Date: 20150223
  Receipt Date: 20150320
  Transmission Date: 20150721
  Serious: Yes (Hospitalization)
  Sender: FDA-Public Use
  Company Number: FR-BRISTOL-MYERS SQUIBB COMPANY-BMS-2015-009127

PATIENT
  Age: 59 Year
  Sex: Female
  Weight: 58 kg

DRUGS (1)
  1. DASATINIB [Suspect]
     Active Substance: DASATINIB
     Indication: CHRONIC MYELOID LEUKAEMIA
     Dosage: 100 MG, QD
     Route: 048
     Dates: start: 20121217

REACTIONS (2)
  - Fatigue [Recovered/Resolved]
  - Peripheral coldness [Recovered/Resolved]

NARRATIVE: CASE EVENT DATE: 20150129
